FAERS Safety Report 4546351-1 (Version None)
Quarter: 2005Q1

REPORT INFORMATION
  Report Type: 
  Country: None (occurrence: None)
  Receive Date: 20050103
  Receipt Date: 20041221
  Transmission Date: 20050727
  Serious: Yes (Life-Threatening, Hospitalization, Other)
  Sender: FDA-Public Use
  Company Number: 2004107203

PATIENT
  Age: 21 Year
  Sex: Female

DRUGS (8)
  1. AZITHROMYCIN [Suspect]
     Indication: LARYNGOPHARYNGITIS
     Dosage: 50 MG (500 MG, 1 IN 1 D), ORAL
     Route: 048
     Dates: start: 20041202, end: 20041202
  2. LOXOPROFEN SODIUM (LOXOPROFEN SODIUM) [Suspect]
     Indication: UPPER RESPIRATORY TRACT INFLAMMATION
     Dosage: 180 MG (60 MG, 3 IN 1 D), ORAL
     Route: 048
     Dates: start: 20041202, end: 20041204
  3. ALL OTHER THERAPEUTIC PRODUCTS (ALL OTHER THERAPEUTIC PRODUCTS) [Suspect]
     Indication: UPPER RESPIRATORY TRACT INFLAMMATION
     Dosage: 4-12 MG PER DAY (1 TO 4 TIMES A DAY), ORAL
     Route: 048
     Dates: start: 20041202, end: 20041204
  4. TEPRENONE (TEPRENONE) [Concomitant]
  5. TOWATHIEN (CAFFEINE,  PARACETAMOL, PROMETHAZINE, SALICYLAMIDE) [Concomitant]
  6. SOLITA-T         (ELECTROLYTES NOS) [Concomitant]
  7. AZULENE (AZULENE) [Concomitant]
  8. ASCORBIC ACID [Concomitant]

REACTIONS (17)
  - ALANINE AMINOTRANSFERASE INCREASED [None]
  - ASPARTATE AMINOTRANSFERASE INCREASED [None]
  - C-REACTIVE PROTEIN INCREASED [None]
  - DRUG ERUPTION [None]
  - DYSURIA [None]
  - EYE DISCHARGE [None]
  - HEPATIC FUNCTION ABNORMAL [None]
  - LIP EROSION [None]
  - OCULOMUCOCUTANEOUS SYNDROME [None]
  - PRODUCTIVE COUGH [None]
  - SPUTUM CULTURE POSITIVE [None]
  - STAPHYLOCOCCAL INFECTION [None]
  - STEVENS-JOHNSON SYNDROME [None]
  - TOXIC EPIDERMAL NECROLYSIS [None]
  - UPPER RESPIRATORY TRACT INFLAMMATION [None]
  - URETHRAL PAIN [None]
  - WOUND INFECTION STAPHYLOCOCCAL [None]
